FAERS Safety Report 12814165 (Version 2)
Quarter: 2016Q4

REPORT INFORMATION
  Report Type: Spontaneous
  Country: JP (occurrence: JP)
  Receive Date: 20161006
  Receipt Date: 20161116
  Transmission Date: 20170207
  Serious: Yes (Death)
  Sender: FDA-Public Use
  Company Number: JP-ROCHE-1838912

PATIENT
  Age: 89 Year
  Sex: Female
  Weight: 36 kg

DRUGS (3)
  1. DENOSINE (JAPAN) [Suspect]
     Active Substance: GANCICLOVIR
     Indication: CYTOMEGALOVIRUS ENTEROCOLITIS
     Route: 041
     Dates: start: 20160830, end: 20160912
  2. FOSCARNET SODIUM. [Concomitant]
     Active Substance: FOSCARNET SODIUM
  3. TAKEPRON [Concomitant]
     Active Substance: LANSOPRAZOLE

REACTIONS (1)
  - Platelet count decreased [Fatal]

NARRATIVE: CASE EVENT DATE: 20160912
